FAERS Safety Report 9772018 (Version 1)
Quarter: 2013Q4

REPORT INFORMATION
  Report Type: Spontaneous
  Country: US (occurrence: None)
  Receive Date: 20131108
  Receipt Date: 20131108
  Transmission Date: 20140711
  Serious: Yes (Death)
  Sender: FDA-Public Use
  Company Number: US-RRD-13-00031

PATIENT
  Sex: 0

DRUGS (1)
  1. ASPARAGINASE (ASPARAGINASE) (UNKNOWN) (ASPARAGINASE) [Suspect]
     Indication: ACUTE LYMPHOCYTIC LEUKAEMIA

REACTIONS (3)
  - Cerebral thrombosis [None]
  - Ischaemic cerebral infarction [None]
  - Cerebrovascular accident [None]
